FAERS Safety Report 5612708-0 (Version None)
Quarter: 2008Q1

REPORT INFORMATION
  Report Type: 
  Country: None (occurrence: None)
  Receive Date: 20080204
  Receipt Date: 20080128
  Transmission Date: 20080703
  Serious: Yes (Hospitalization)
  Sender: FDA-Public Use
  Company Number: PHHO2007US10791

PATIENT
  Age: 46 Year
  Sex: Male
  Weight: 83 kg

DRUGS (2)
  1. CERTICAN [Suspect]
     Indication: RENAL TRANSPLANT
     Dosage: 1.5 MG /DAILY
     Route: 048
     Dates: start: 20061118
  2. NEORAL [Suspect]
     Indication: RENAL TRANSPLANT
     Dosage: 150 MG /DAILY
     Route: 048
     Dates: start: 20061118

REACTIONS (10)
  - ABSCESS LIMB [None]
  - BACTERAEMIA [None]
  - CELLULITIS [None]
  - DEBRIDEMENT [None]
  - METATARSAL EXCISION [None]
  - OEDEMA PERIPHERAL [None]
  - OSTEOMYELITIS [None]
  - PAIN IN EXTREMITY [None]
  - STAPHYLOCOCCAL INFECTION [None]
  - WOUND CLOSURE [None]
